FAERS Safety Report 10186491 (Version 3)
Quarter: 2014Q3

REPORT INFORMATION
  Report Type: Report from Study
  Country: US (occurrence: US)
  Receive Date: 20140521
  Receipt Date: 20140814
  Transmission Date: 20150326
  Serious: Yes (Hospitalization)
  Sender: FDA-Public Use
  Company Number: US-PFIZER INC-2014132301

PATIENT
  Age: 45 Year
  Sex: Male
  Weight: 84.06 kg

DRUGS (14)
  1. OXALIPLATIN. [Suspect]
     Active Substance: OXALIPLATIN
     Indication: PANCREATIC CARCINOMA
     Dosage: 172 MG, CYCLIC (ONCE EVERY TWO WEEKS)
     Route: 042
     Dates: start: 20140501, end: 20140501
  2. VITAMIN D [Concomitant]
     Active Substance: CHOLECALCIFEROL
  3. FLUOROURACIL. [Suspect]
     Active Substance: FLUOROURACIL
     Dosage: 4848 MG, CYCLIC (ONCE EVERY TWO WEEKS)
     Route: 041
     Dates: start: 20140501, end: 20140501
  4. MILK THISTLE [Concomitant]
     Active Substance: MILK THISTLE
  5. TURMERIC [Concomitant]
     Active Substance: TURMERIC
  6. IRINOTECAN HCL [Suspect]
     Active Substance: IRINOTECAN HYDROCHLORIDE
     Indication: PANCREATIC CARCINOMA
     Dosage: 363 MG, CYCLIC (ONCE EVERY TWO WEEKS)
     Route: 042
     Dates: start: 20140501, end: 20140501
  7. DEXAMETHASONE. [Concomitant]
     Active Substance: DEXAMETHASONE
  8. FLUOROURACIL. [Suspect]
     Active Substance: FLUOROURACIL
     Indication: PANCREATIC CARCINOMA
     Dosage: 808 MG, CYCLIC (ONCE EVERY TWO WEEKS)
     Route: 040
     Dates: start: 20140501, end: 20140501
  9. PF-04136309 [Suspect]
     Active Substance: INVESTIGATIONAL PRODUCT
     Indication: PANCREATIC CARCINOMA
     Dosage: 500 MG, 2X/DAY
     Route: 048
     Dates: start: 20140501, end: 20140511
  10. LIDOCAINE/PRILOCAINE [Concomitant]
  11. ONDANSETRON HYDROCHLORIDE. [Concomitant]
     Active Substance: ONDANSETRON HYDROCHLORIDE
  12. PROCHLORPERAZINE MALEATE. [Concomitant]
     Active Substance: PROCHLORPERAZINE MALEATE
  13. LEUCOVORIN [Suspect]
     Active Substance: LEUCOVORIN
     Indication: PANCREATIC CARCINOMA
     Dosage: 808 MG, CYCLIC (ONCE EVERY TWO WEEKS)
     Route: 042
     Dates: start: 20140501, end: 20140501
  14. ZOFRAN [Concomitant]
     Active Substance: ONDANSETRON HYDROCHLORIDE

REACTIONS (2)
  - Muscular weakness [Recovered/Resolved]
  - Pyrexia [Recovered/Resolved]

NARRATIVE: CASE EVENT DATE: 20140511
